FAERS Safety Report 10476493 (Version 1)
Quarter: 2014Q3

REPORT INFORMATION
  Report Type: Spontaneous
  Country: SK (occurrence: SK)
  Receive Date: 20140925
  Receipt Date: 20140925
  Transmission Date: 20150326
  Serious: Yes (Hospitalization)
  Sender: FDA-Public Use
  Company Number: SK-GLAXOSMITHKLINE-B1035607A

PATIENT
  Age: 26 Year
  Sex: Male

DRUGS (2)
  1. PREDNISON [Concomitant]
     Active Substance: PREDNISONE
     Indication: IMMUNE THROMBOCYTOPENIC PURPURA
     Route: 065
     Dates: start: 20130228, end: 20130321
  2. REVOLADE [Suspect]
     Active Substance: ELTROMBOPAG
     Indication: IMMUNE THROMBOCYTOPENIC PURPURA
     Dosage: 25MG PER DAY
     Route: 065
     Dates: start: 20130214

REACTIONS (9)
  - Pilonidal cyst [Unknown]
  - Oral herpes [Unknown]
  - Herpes zoster [Unknown]
  - Aspartate aminotransferase increased [Recovered/Resolved]
  - Viral infection [Unknown]
  - Upper respiratory tract infection [Unknown]
  - Herpes simplex [Unknown]
  - Diarrhoea [Unknown]
  - Pyrexia [Unknown]

NARRATIVE: CASE EVENT DATE: 20130411
